FAERS Safety Report 6815203-6 (Version None)
Quarter: 2010Q3

REPORT INFORMATION
  Report Type: 
  Country: None (occurrence: None)
  Receive Date: 20100701
  Receipt Date: 20100701
  Transmission Date: 20110219
  Serious: Yes (Hospitalization)
  Sender: FDA-Public Use
  Company Number: None

PATIENT
  Age: 62 Year
  Sex: Male
  Weight: 85.3 kg

DRUGS (1)
  1. WARFARIN [Suspect]
     Indication: DEEP VEIN THROMBOSIS
     Dosage: 2.5 MG PM PO
     Route: 048
     Dates: start: 20100222, end: 20100503

REACTIONS (5)
  - BACTERIAL TEST POSITIVE [None]
  - BLOOD URINE PRESENT [None]
  - HAEMATURIA [None]
  - PENILE HAEMORRHAGE [None]
  - WHITE BLOOD CELLS URINE POSITIVE [None]
